FAERS Safety Report 20404770 (Version 1)
Quarter: 2022Q1

REPORT INFORMATION
  Report Type: Spontaneous
  Country: US (occurrence: None)
  Receive Date: 20220131
  Receipt Date: 20220131
  Transmission Date: 20220424
  Serious: Yes (Other)
  Sender: FDA-Public Use
  Company Number: US-Hikma Pharmaceuticals USA Inc.-US-H14001-22-00245

PATIENT
  Age: 52 Year
  Sex: Female
  Weight: 57.6 kg

DRUGS (7)
  1. LITHIUM [Suspect]
     Active Substance: LITHIUM
     Indication: Bipolar disorder
     Dosage: MAXIMUM OF 525 MG WAS PRESCRIBED FOR WEEKS 170-171
     Route: 065
  2. SEROQUEL [Concomitant]
     Active Substance: QUETIAPINE FUMARATE
     Indication: Bipolar disorder
     Dosage: UNKNOWN
     Route: 048
     Dates: start: 2001, end: 2016
  3. ATIVAN [Concomitant]
     Active Substance: LORAZEPAM
     Indication: Bipolar disorder
     Dosage: UNKNOWN
     Route: 065
  4. TRILEPTAL [Concomitant]
     Active Substance: OXCARBAZEPINE
     Indication: Bipolar disorder
     Dosage: UNKNOWN
     Route: 065
  5. TOPAMAX [Concomitant]
     Active Substance: TOPIRAMATE
     Indication: Bipolar disorder
     Dosage: UNKNOWN
     Route: 065
  6. NEURONTIN [Concomitant]
     Active Substance: GABAPENTIN
     Indication: Bipolar disorder
     Dosage: UNKNOWN
     Route: 065
  7. TEGRETOL [Concomitant]
     Active Substance: CARBAMAZEPINE
     Indication: Bipolar disorder
     Dosage: UNKNOWN
     Route: 065

REACTIONS (6)
  - Diarrhoea [Unknown]
  - Dehydration [Unknown]
  - Syncope [Unknown]
  - Amnesia [Unknown]
  - Hypothyroidism [Unknown]
  - Agitation [Unknown]
